FAERS Safety Report 14026782 (Version 9)
Quarter: 2019Q2

REPORT INFORMATION
  Report Type: Report from Study
  Country: CA (occurrence: CA)
  Receive Date: 20170929
  Receipt Date: 20190619
  Transmission Date: 20190711
  Serious: Yes (Other)
  Sender: FDA-Public Use
  Company Number: CA-NOVEN PHARMACEUTICALS, INC.-CA2017000914

PATIENT

DRUGS (23)
  1. RIVA LANSOPRAZOLE [Concomitant]
  2. SYNTHROID [Concomitant]
     Active Substance: LEVOTHYROXINE SODIUM
  3. AVAMYS [Concomitant]
     Active Substance: FLUTICASONE FUROATE
  4. PARACETAMOL WITH CODEINE PHOSPHATE [Concomitant]
     Active Substance: ACETAMINOPHEN\CODEINE PHOSPHATE
  5. AMOXICIL-CLAVUL GI [Concomitant]
     Active Substance: AMOXICILLIN\CLAVULANATE POTASSIUM
     Dosage: 500 MG, TID
     Route: 048
  6. AMOXICIL-CLAVUL GI [Concomitant]
     Active Substance: AMOXICILLIN\CLAVULANATE POTASSIUM
     Dosage: 500 MG, BID
     Route: 048
  7. CYMBALTA [Concomitant]
     Active Substance: DULOXETINE HYDROCHLORIDE
     Indication: BACK PAIN
  8. CANDESARTAN CILEXETIL. [Suspect]
     Active Substance: CANDESARTAN CILEXETIL
     Indication: PRODUCT USED FOR UNKNOWN INDICATION
     Dosage: 2 MG/ 25 MG, QD
     Route: 048
  9. RIVA AMLODIPINE [Concomitant]
  10. RIVA-CYCLOPRINE [Concomitant]
     Indication: PRODUCT USED FOR UNKNOWN INDICATION
  11. EURO ASA EC [Concomitant]
  12. RIVA ROSUVASTATIN [Concomitant]
  13. LYRICA [Concomitant]
     Active Substance: PREGABALIN
     Dosage: 75 MG + 50 MG PER DAY
  14. ESTRADIOL/NORETHISTERONE ACETATE [Suspect]
     Active Substance: ESTRADIOL\NORETHINDRONE ACETATE
     Indication: PRODUCT USED FOR UNKNOWN INDICATION
     Dosage: 1 DF (140/50 0.14MG-0.05MG), 2/WK
     Route: 065
  15. ATENOLOL. [Suspect]
     Active Substance: ATENOLOL
     Indication: PRODUCT USED FOR UNKNOWN INDICATION
     Dosage: UNK, UNKNOWN
     Route: 065
  16. VITAMIN E [Concomitant]
     Active Substance: .ALPHA.-TOCOPHEROL
     Dosage: 400 MG IU, ONCE DAILY FOR A WEEK
     Dates: start: 201610
  17. APO AMITRIPTYLINE [Concomitant]
     Active Substance: AMITRIPTYLINE
  18. APO NAPROXEN [Concomitant]
     Active Substance: NAPROXEN
  19. NAPROXEN. [Concomitant]
     Active Substance: NAPROXEN
  20. SANDOSTATIN [Suspect]
     Active Substance: OCTREOTIDE ACETATE
     Indication: PRODUCT USED FOR UNKNOWN INDICATION
     Dosage: 100 ?G, TID
     Route: 058
     Dates: start: 201710
  21. DULOXETINE. [Suspect]
     Active Substance: DULOXETINE
     Indication: PAIN IN EXTREMITY
     Dosage: UNK, UNKNOWN
     Route: 065
     Dates: start: 20170520
  22. LAX-A-DAY [Concomitant]
  23. EFFEXOR [Concomitant]
     Active Substance: VENLAFAXINE HYDROCHLORIDE

REACTIONS (19)
  - Somnolence [Unknown]
  - Fatigue [Unknown]
  - Rhinorrhoea [Unknown]
  - Hot flush [Unknown]
  - Productive cough [Unknown]
  - Musculoskeletal pain [Unknown]
  - Acne [Not Recovered/Not Resolved]
  - Nausea [Recovered/Resolved]
  - Erythema [Unknown]
  - Sinusitis [Unknown]
  - Diarrhoea [Unknown]
  - Renal impairment [Unknown]
  - Contusion [Unknown]
  - Dyspnoea [Unknown]
  - Pruritus [Not Recovered/Not Resolved]
  - Constipation [Unknown]
  - Bursitis [Unknown]
  - Dizziness [Unknown]
  - Abdominal distension [Unknown]

NARRATIVE: CASE EVENT DATE: 20160926
